FAERS Safety Report 22029862 (Version 2)
Quarter: 2023Q1

REPORT INFORMATION
  Report Type: Spontaneous
  Country: US (occurrence: US)
  Receive Date: 20230223
  Receipt Date: 20230224
  Transmission Date: 20230418
  Serious: No
  Sender: FDA-Public Use
  Company Number: US-PFIZER INC-202300079689

PATIENT
  Sex: Female

DRUGS (1)
  1. PAXLOVID [Suspect]
     Active Substance: NIRMATRELVIR\RITONAVIR
     Indication: COVID-19 treatment
     Dosage: UNK (REDUCED DOSING/ LOW DOSE)

REACTIONS (4)
  - Dizziness [Unknown]
  - Lethargy [Unknown]
  - Sedation [Unknown]
  - Balance disorder [Unknown]
